FAERS Safety Report 8615502-1 (Version None)
Quarter: 2012Q3

REPORT INFORMATION
  Report Type: 
  Country: None (occurrence: None)
  Receive Date: 20120823
  Receipt Date: 20120815
  Transmission Date: 20120928
  Serious: Yes (Other)
  Sender: FDA-Public Use
  Company Number: SE-BAYER-2012-076412

PATIENT
  Age: 48 Year
  Sex: Female

DRUGS (1)
  1. MIRENA [Suspect]
     Indication: CONTRACEPTION
     Dosage: 20 MCG/24HR, CONT
     Route: 015
     Dates: start: 20120608, end: 20120702

REACTIONS (4)
  - STREPTOCOCCAL INFECTION [None]
  - DYSMENORRHOEA [None]
  - PYREXIA [None]
  - CERVICAL DISCHARGE [None]
